FAERS Safety Report 15083393 (Version 1)
Quarter: 2018Q2

REPORT INFORMATION
  Report Type: Spontaneous
  Country: RO (occurrence: RO)
  Receive Date: 20180628
  Receipt Date: 20180628
  Transmission Date: 20180711
  Serious: Yes (Life-Threatening)
  Sender: FDA-Public Use
  Company Number: RO-PFIZER INC-2018259802

PATIENT
  Age: 39 Year
  Sex: Female
  Weight: 72 kg

DRUGS (2)
  1. IDARUBICIN HCL [Suspect]
     Active Substance: IDARUBICIN HYDROCHLORIDE
     Indication: ACUTE MYELOID LEUKAEMIA
     Dosage: 21 MG, FOR 3 DAYS
     Route: 042
     Dates: start: 20180319, end: 20180321
  2. CYTARABINE. [Concomitant]
     Active Substance: CYTARABINE
     Indication: ACUTE MYELOID LEUKAEMIA
     Dosage: 170 MG, DAILY
     Route: 042
     Dates: start: 20180319, end: 20180325

REACTIONS (5)
  - Ventricular hypokinesia [Recovered/Resolved]
  - Acute pulmonary oedema [Recovered/Resolved]
  - Mitral valve incompetence [Recovered/Resolved]
  - Ejection fraction decreased [Recovered/Resolved]
  - Cardiac failure acute [Recovered/Resolved]

NARRATIVE: CASE EVENT DATE: 20180407
